FAERS Safety Report 16510380 (Version 2)
Quarter: 2019Q3

REPORT INFORMATION
  Report Type: Report from Study
  Country: ES (occurrence: ES)
  Receive Date: 20190702
  Receipt Date: 20190708
  Transmission Date: 20191004
  Serious: Yes (Hospitalization)
  Sender: FDA-Public Use
  Company Number: ES-SA-2019SA173003

PATIENT
  Age: 78 Year
  Sex: Female
  Weight: 53 kg

DRUGS (9)
  1. FLUOROURACIL. [Suspect]
     Active Substance: FLUOROURACIL
     Indication: COLORECTAL CANCER METASTATIC
     Dosage: 447 MG, QOW
     Route: 040
     Dates: start: 20190617, end: 20190617
  2. AFLIBERCEPT [Suspect]
     Active Substance: AFLIBERCEPT
     Indication: COLORECTAL CANCER
     Dosage: 212 MG, QOW
     Route: 042
     Dates: start: 20190617, end: 20190617
  3. PARACETAMOL [Concomitant]
     Active Substance: ACETAMINOPHEN
     Indication: PAIN
     Dosage: 18 MG
     Route: 042
  4. BISOPROLOL [Concomitant]
     Active Substance: BISOPROLOL
     Indication: HYPERTENSION
     Dosage: 5 MG
     Route: 042
     Dates: start: 20190624
  5. PANTOPRAZOL [PANTOPRAZOLE] [Concomitant]
     Active Substance: PANTOPRAZOLE
     Indication: GASTRIC DISORDER
     Dosage: 40 MG
     Route: 042
     Dates: start: 20190624
  6. METOCLOPRAMIDE. [Concomitant]
     Active Substance: METOCLOPRAMIDE
     Indication: VOMITING
     Dosage: 10 MG
     Dates: start: 20190624
  7. FLUOROURACIL. [Suspect]
     Active Substance: FLUOROURACIL
     Dosage: 2980 MG, QOW
     Route: 042
     Dates: start: 20190617, end: 20190617
  8. IRINOTECAN [Suspect]
     Active Substance: IRINOTECAN
     Indication: COLORECTAL CANCER
     Dosage: 223.5 MG, QOW
     Route: 042
     Dates: start: 20190617, end: 20190617
  9. URAPIDIL [Concomitant]
     Active Substance: URAPIDIL
     Indication: HYPERTENSION
     Dosage: 150 MG
     Route: 042
     Dates: start: 20190624

REACTIONS (1)
  - Cerebral infarction [Recovered/Resolved]

NARRATIVE: CASE EVENT DATE: 20190624
